FAERS Safety Report 7851540-4 (Version None)
Quarter: 2011Q3

REPORT INFORMATION
  Report Type: 
  Country: None (occurrence: None)
  Receive Date: 20110901
  Receipt Date: 20101015
  Transmission Date: 20111222
  Serious: Yes (Disabling, Other)
  Sender: FDA-Public Use
  Company Number: 251875USA

PATIENT
  Sex: Female

DRUGS (3)
  1. METOCLOPRAMIDE [Suspect]
     Indication: IMPAIRED GASTRIC EMPTYING
     Dosage: (10 MG), ORAL
     Route: 048
     Dates: start: 19950101, end: 20050101
  2. METOCLOPRAMIDE [Suspect]
     Indication: NAUSEA
     Dosage: (10 MG), ORAL
     Route: 048
     Dates: start: 19950101, end: 20050101
  3. METOCLOPRAMIDE [Suspect]
     Indication: VOMITING
     Dosage: (10 MG), ORAL
     Route: 048
     Dates: start: 19950101, end: 20050101

REACTIONS (1)
  - TARDIVE DYSKINESIA [None]
